FAERS Safety Report 4432003-5 (Version None)
Quarter: 2004Q3

REPORT INFORMATION
  Report Type: 
  Country: None (occurrence: None)
  Receive Date: 20040819
  Receipt Date: 20040815
  Transmission Date: 20050211
  Serious: Yes (Life-Threatening, Hospitalization)
  Sender: FDA-Public Use
  Company Number: 8/04 EPILEPSIA ART

PATIENT
  Age: 8 Year
  Sex: Male

DRUGS (3)
  1. VALPROIC ACID [Suspect]
     Indication: GENERALISED NON-CONVULSIVE EPILEPSY
     Dosage: 30 MG/KG DAY;  SINCE 5 YO
  2. TOPIRAMATE [Concomitant]
  3. CLONAZEPAM [Concomitant]

REACTIONS (2)
  - FANCONI SYNDROME ACQUIRED [None]
  - STATUS EPILEPTICUS [None]
